FAERS Safety Report 7799127-6 (Version None)
Quarter: 2011Q4

REPORT INFORMATION
  Report Type: 
  Country: None (occurrence: None)
  Receive Date: 20111006
  Receipt Date: 20110928
  Transmission Date: 20120403
  Serious: Yes (Hospitalization, Other)
  Sender: FDA-Public Use
  Company Number: FR-PFIZER INC-2011230600

PATIENT
  Sex: Female

DRUGS (12)
  1. FERROUS SULFATE TAB [Concomitant]
     Dosage: UNK, TWICE DAILY
  2. ATORVASTATIN CALCIUM [Concomitant]
     Dosage: 40 MG, 1X/DAY
  3. EXFORGE [Concomitant]
     Dosage: 10 MG/ 160 MG 1X DAY
  4. VITAMIN D [Concomitant]
     Dosage: 0.25 UG, 1X/DAY
  5. MYCOPHENOLATE MOFETIL (CELLCEPT) [Concomitant]
     Dosage: 500 MG, 2X/DAY
  6. ENALAPRIL MALEATE [Concomitant]
     Dosage: 20 MG, 2X/DAY
  7. RAPAMUNE [Suspect]
     Indication: RENAL TRANSPLANT
     Dosage: 2 MG, 2X/DAY
     Route: 048
     Dates: start: 20070101, end: 20110811
  8. PREDNISONE [Concomitant]
     Dosage: 10 MG, 1X/DAY
  9. PRAZOSIN HCL [Concomitant]
     Dosage: 2.5 MG, 1X/DAY
  10. HYPERIUM [Concomitant]
     Dosage: 1 MG, 2X/DAY
  11. LEVOTHYROXINE SODIUM [Concomitant]
     Dosage: 150 UG, 1X/DAY
  12. DIAMICRON [Concomitant]
     Dosage: 30 MG, 1X/DAY

REACTIONS (3)
  - PERICARDITIS [None]
  - INTERSTITIAL LUNG DISEASE [None]
  - RENAL FAILURE ACUTE [None]
